FAERS Safety Report 7807295-2 (Version None)
Quarter: 2011Q4

REPORT INFORMATION
  Report Type: 
  Country: None (occurrence: None)
  Receive Date: 20111011
  Receipt Date: 20111004
  Transmission Date: 20120403
  Serious: Yes (Death, Life-Threatening, Hospitalization, Disabling, Other)
  Sender: FDA-Public Use
  Company Number: US-MERCK-0702USA04208

PATIENT
  Age: 57 Year
  Sex: Male
  Weight: 92 kg

DRUGS (2)
  1. VIAGRA [Concomitant]
     Route: 048
     Dates: start: 20040301
  2. VYTORIN [Suspect]
     Indication: BLOOD CHOLESTEROL INCREASED
     Route: 048
     Dates: start: 20050113, end: 20050223

REACTIONS (9)
  - ARTERIOSCLEROSIS CORONARY ARTERY [None]
  - DRUG ADMINISTRATION ERROR [None]
  - RENAL FAILURE ACUTE [None]
  - CORONARY ARTERY THROMBOSIS [None]
  - SEPTIC SHOCK [None]
  - SEPSIS [None]
  - RHABDOMYOLYSIS [None]
  - ACUTE MYOCARDIAL INFARCTION [None]
  - RESPIRATORY ARREST [None]
